FAERS Safety Report 23261870 (Version 3)
Quarter: 2025Q4

REPORT INFORMATION
  Report Type: Spontaneous
  Country: CA (occurrence: CA)
  Receive Date: 20231205
  Receipt Date: 20251202
  Transmission Date: 20260117
  Serious: Yes (Other)
  Sender: SANDOZ
  Company Number: CA-002147023-NVSC2023CA141126

PATIENT
  Age: 39 Year
  Sex: Male

DRUGS (9)
  1. SOMATROPIN [Suspect]
     Active Substance: SOMATROPIN
     Dosage: 200 UG, QD, PRE-FILLED PEN
     Route: 058
  2. SOMATROPIN [Suspect]
     Active Substance: SOMATROPIN
     Dosage: 200 UG, QD, PRE-FILLED PEN
     Route: 058
  3. SOMATROPIN [Suspect]
     Active Substance: SOMATROPIN
     Dosage: 400 UG, QD
     Route: 058
  4. SOMATROPIN [Suspect]
     Active Substance: SOMATROPIN
     Dosage: 400 UG, QD, PRE-FILLED PEN
     Route: 058
  5. SOMATROPIN [Suspect]
     Active Substance: SOMATROPIN
     Dosage: 450 MG, QD
     Route: 058
  6. SOMATROPIN [Suspect]
     Active Substance: SOMATROPIN
     Indication: Growth hormone deficiency
     Dosage: 500 UG, QD,PRE-FILLED PEN
     Route: 058
  7. HYDROCORTISONE [Concomitant]
     Active Substance: HYDROCORTISONE
     Indication: Product used for unknown indication
     Dosage: UNK
     Route: 065
  8. HYDROCORTISONE ACETATE [Concomitant]
     Active Substance: HYDROCORTISONE ACETATE
     Indication: Product used for unknown indication
     Dosage: 15 MG
     Route: 065
  9. SYNTHROID [Concomitant]
     Active Substance: LEVOTHYROXINE SODIUM
     Indication: Product used for unknown indication
     Dosage: 137 UG
     Route: 065

REACTIONS (5)
  - Brain neoplasm [Unknown]
  - Pituitary tumour benign [Unknown]
  - Condition aggravated [Unknown]
  - Intentional product misuse [Unknown]
  - Off label use [Unknown]
